FAERS Safety Report 23070748 (Version 1)
Quarter: 2023Q4

REPORT INFORMATION
  Report Type: Spontaneous
  Country: US (occurrence: US)
  Receive Date: 20231016
  Receipt Date: 20231016
  Transmission Date: 20240109
  Serious: Yes (Other)
  Sender: FDA-Public Use
  Company Number: US-ABBVIE-5446346

PATIENT
  Age: 26 Year
  Sex: Female

DRUGS (1)
  1. LEVOTHYROXINE [Suspect]
     Active Substance: LEVOTHYROXINE
     Indication: Hypothyroidism
     Route: 048

REACTIONS (7)
  - Suicidal ideation [Unknown]
  - Palpitations [Unknown]
  - Body temperature abnormal [Unknown]
  - Diarrhoea [Unknown]
  - Product prescribing error [Unknown]
  - Anxiety [Unknown]
  - Depression [Unknown]
